FAERS Safety Report 20893766 (Version 1)
Quarter: 2022Q2

REPORT INFORMATION
  Report Type: Spontaneous
  Country: US (occurrence: None)
  Receive Date: 20220531
  Receipt Date: 20220531
  Transmission Date: 20220721
  Serious: Yes (Hospitalization, Other)
  Sender: FDA-Public Use
  Company Number: US-MLMSERVICE-20220513-3555576-1

PATIENT
  Age: 55 Year
  Sex: Male

DRUGS (6)
  1. CYCLOPHOSPHAMIDE [Suspect]
     Active Substance: CYCLOPHOSPHAMIDE
     Indication: Metastatic neoplasm
     Dosage: UNKNOWN
     Route: 065
  2. CYCLOPHOSPHAMIDE [Suspect]
     Active Substance: CYCLOPHOSPHAMIDE
     Indication: Paraganglion neoplasm
  3. DACARBAZINE [Suspect]
     Active Substance: DACARBAZINE
     Indication: Paraganglion neoplasm
     Dosage: UNKNOWN
     Route: 065
  4. DACARBAZINE [Suspect]
     Active Substance: DACARBAZINE
     Indication: Metastatic neoplasm
  5. DOXORUBICIN [Suspect]
     Active Substance: DOXORUBICIN
     Indication: Paraganglion neoplasm
     Dosage: UNKNOWN
     Route: 065
  6. DOXORUBICIN [Suspect]
     Active Substance: DOXORUBICIN
     Indication: Metastatic neoplasm

REACTIONS (4)
  - Neutropenia [Unknown]
  - Candida infection [Unknown]
  - Fatigue [Unknown]
  - Mucosal inflammation [Unknown]
